FAERS Safety Report 8206218-4 (Version None)
Quarter: 2012Q1

REPORT INFORMATION
  Report Type: 
  Country: None (occurrence: None)
  Receive Date: 20120313
  Receipt Date: 20120305
  Transmission Date: 20120608
  Serious: Yes (Other)
  Sender: FDA-Public Use
  Company Number: PHHY2012CA004925

PATIENT
  Sex: Male

DRUGS (6)
  1. RASILEZ [Concomitant]
  2. GLUMETZA [Concomitant]
  3. JANUVIA [Concomitant]
  4. BISOPROLOL FUMARATE [Concomitant]
  5. ZOLEDRONOC ACID [Suspect]
     Indication: OSTEOPOROSIS
     Dosage: UNK UKN, UNK
     Route: 042
     Dates: start: 20111209
  6. DIOVAN [Concomitant]

REACTIONS (14)
  - MEMORY IMPAIRMENT [None]
  - MALAISE [None]
  - ASTHENIA [None]
  - VISUAL IMPAIRMENT [None]
  - PAIN IN EXTREMITY [None]
  - SOMNOLENCE [None]
  - INFLUENZA LIKE ILLNESS [None]
  - MUSCULOSKELETAL PAIN [None]
  - CHILLS [None]
  - EYE PAIN [None]
  - PAIN [None]
  - VITREOUS FLOATERS [None]
  - FEELING ABNORMAL [None]
  - SYNCOPE [None]
